FAERS Safety Report 7079203-6 (Version None)
Quarter: 2010Q4

REPORT INFORMATION
  Report Type: 
  Country: None (occurrence: None)
  Receive Date: 20101102
  Receipt Date: 20101022
  Transmission Date: 20110411
  Serious: Yes (Other)
  Sender: FDA-Public Use
  Company Number: B0681201A

PATIENT
  Sex: Female

DRUGS (4)
  1. EPIVIR [Suspect]
     Indication: HIV INFECTION
     Route: 065
  2. ZIDOVUDINE [Suspect]
     Indication: HIV INFECTION
     Route: 065
  3. ABACAVIR [Suspect]
     Indication: HIV INFECTION
     Route: 065
  4. NEVIRAPINE [Suspect]
     Indication: HIV INFECTION
     Route: 065

REACTIONS (2)
  - LIPOATROPHY [None]
  - PANCREATITIS [None]
